FAERS Safety Report 9846073 (Version 3)
Quarter: 2014Q1

REPORT INFORMATION
  Report Type: Report from Study
  Country: US (occurrence: US)
  Receive Date: 20140127
  Receipt Date: 20140213
  Transmission Date: 20141002
  Serious: Yes (Hospitalization)
  Sender: FDA-Public Use
  Company Number: US-ACTELION-A-US2012-61524

PATIENT
  Age: 80 Year
  Sex: Female

DRUGS (1)
  1. TRACLEER [Suspect]
     Indication: PULMONARY ARTERIAL HYPERTENSION
     Dosage: UNK
     Route: 048
     Dates: start: 20050511

REACTIONS (9)
  - Heart rate decreased [Recovering/Resolving]
  - Chest pain [Recovering/Resolving]
  - Syncope [Recovering/Resolving]
  - Blood pressure decreased [Recovering/Resolving]
  - Pneumonia [Unknown]
  - Cardiac failure congestive [Recovering/Resolving]
  - Fluid retention [Recovering/Resolving]
  - Poor peripheral circulation [Recovering/Resolving]
  - Peripheral artery stent insertion [Recovering/Resolving]
